FAERS Safety Report 5094811-X (Version None)
Quarter: 2006Q3

REPORT INFORMATION
  Report Type: 
  Country: None (occurrence: None)
  Receive Date: 20060731
  Receipt Date: 20060418
  Transmission Date: 20061208
  Serious: No
  Sender: FDA-Public Use
  Company Number: 2006PV012305

PATIENT
  Age: 38 Year
  Sex: Female
  Weight: 113.3993 kg

DRUGS (1)
  1. BYETTA [Suspect]
     Indication: GLUCOSE TOLERANCE IMPAIRED
     Dosage: 5 MCG;BID;SC
     Route: 058
     Dates: start: 20060327, end: 20060417

REACTIONS (3)
  - ANGIONEUROTIC OEDEMA [None]
  - INJECTION SITE URTICARIA [None]
  - RASH GENERALISED [None]
